FAERS Safety Report 15691670 (Version 1)
Quarter: 2018Q4

REPORT INFORMATION
  Report Type: Spontaneous
  Country: US (occurrence: US)
  Receive Date: 20181205
  Receipt Date: 20181205
  Transmission Date: 20190205
  Serious: Yes (Other)
  Sender: FDA-Public Use
  Company Number: None

PATIENT
  Age: 59 Year
  Sex: Female
  Weight: 85.5 kg

DRUGS (12)
  1. OXYCODONE 15MG 6X/DAY [Concomitant]
  2. TRINTELLIX 20MG 1X PER DAY [Concomitant]
  3. CLONAZEPAM .5 MG 2-3X PER DAY [Concomitant]
  4. VITAMIN D [Concomitant]
     Active Substance: CHOLECALCIFEROL
  5. VITAMIN B6 [Concomitant]
     Active Substance: PYRIDOXINE HYDROCHLORIDE
  6. MOVANTIK [Suspect]
     Active Substance: NALOXEGOL OXALATE
     Indication: CONSTIPATION
     Dosage: ?          QUANTITY:1 TABLET(S);?
     Route: 048
     Dates: start: 20181203, end: 20181203
  7. TAZANIDINE 4MG 2X/DAY [Concomitant]
  8. FENTANYL TRANSDERMAL SYSTEM [Concomitant]
     Active Substance: FENTANYL
  9. L-METHYLFOLATE 15MG 1X PER DAY [Concomitant]
  10. VITAMIN B12 [Concomitant]
     Active Substance: CYANOCOBALAMIN
  11. ZOLPIDEM 10MG 1X PER DAY [Concomitant]
  12. ZINC. [Concomitant]
     Active Substance: ZINC

REACTIONS (2)
  - Drug withdrawal syndrome [None]
  - Post viral fatigue syndrome [None]

NARRATIVE: CASE EVENT DATE: 20181204
